FAERS Safety Report 25181180 (Version 2)
Quarter: 2025Q2

REPORT INFORMATION
  Report Type: Spontaneous
  Country: US (occurrence: US)
  Receive Date: 20250410
  Receipt Date: 20250510
  Transmission Date: 20250716
  Serious: Yes (Hospitalization, Other)
  Sender: NOVO NORDISK
  Company Number: US-NOVOPROD-1402535

PATIENT
  Age: 70 Year
  Sex: Male

DRUGS (3)
  1. OZEMPIC [Suspect]
     Active Substance: SEMAGLUTIDE
     Dates: start: 202403, end: 202502
  2. OZEMPIC [Suspect]
     Active Substance: SEMAGLUTIDE
     Indication: Type 2 diabetes mellitus
     Dates: start: 202310
  3. OZEMPIC [Suspect]
     Active Substance: SEMAGLUTIDE
     Dates: start: 20250325

REACTIONS (7)
  - Fall [Not Recovered/Not Resolved]
  - Spinal laminectomy [Recovered/Resolved]
  - Surgery [Recovered/Resolved]
  - Surgery [Recovered/Resolved]
  - Wound secretion [Recovered/Resolved]
  - Impaired healing [Recovered/Resolved]
  - Flatulence [Unknown]

NARRATIVE: CASE EVENT DATE: 20240401
